FAERS Safety Report 19820908 (Version 1)
Quarter: 2021Q3

REPORT INFORMATION
  Report Type: Spontaneous
  Country: US (occurrence: US)
  Receive Date: 20210910
  Receipt Date: 20210910
  Transmission Date: 20211014
  Serious: No
  Sender: FDA-Public Use
  Company Number: None

PATIENT
  Age: 29 Year
  Sex: Female
  Weight: 98.43 kg

DRUGS (6)
  1. LOLOESTRINFE [Concomitant]
  2. VITAMIN D [Concomitant]
     Active Substance: VITAMIN D NOS
  3. MAGNESIUM [Concomitant]
     Active Substance: MAGNESIUM
  4. FISH OIL [Concomitant]
     Active Substance: FISH OIL
  5. VITAMIN B COMPLEX [Concomitant]
     Active Substance: CYANOCOBALAMIN\DEXPANTHENOL\NIACINAMIDE\PYRIDOXINE HYDROCHLORIDE\RIBOFLAVIN 5^-PHOSPHATE SODIUM\THIAMINE HYDROCHLORIDE\VITAMIN B COMPLEX
  6. NEXPLANON [Suspect]
     Active Substance: ETONOGESTREL
     Dates: start: 20210609, end: 20210908

REACTIONS (10)
  - Pain [None]
  - Acne cystic [None]
  - Affect lability [None]
  - Chills [None]
  - Depressed mood [None]
  - Pharyngitis [None]
  - Weight increased [None]
  - Pyrexia [None]
  - Depression [None]
  - Complication associated with device [None]
